FAERS Safety Report 12431476 (Version 1)
Quarter: 2016Q2

REPORT INFORMATION
  Report Type: Spontaneous
  Country: AU (occurrence: AU)
  Receive Date: 20160603
  Receipt Date: 20160603
  Transmission Date: 20160815
  Serious: Yes (Other)
  Sender: FDA-Public Use
  Company Number: AU-BRISTOL-MYERS SQUIBB COMPANY-BMS-2016-041728

PATIENT
  Age: 52 Year
  Sex: Female

DRUGS (5)
  1. TEMAZE [Interacting]
     Active Substance: TEMAZEPAM
     Indication: SOMNOLENCE
     Route: 065
  2. ENDONE [Interacting]
     Active Substance: OXYCODONE HYDROCHLORIDE
     Indication: PAIN
     Route: 065
  3. SOVALDI [Interacting]
     Active Substance: SOFOSBUVIR
     Indication: HEPATITIS C
     Dosage: UNK
     Route: 065
     Dates: start: 20160507
  4. VALIUM [Concomitant]
     Active Substance: DIAZEPAM
     Indication: PRODUCT USED FOR UNKNOWN INDICATION
     Route: 065
  5. DAKLINZA [Suspect]
     Active Substance: DACLATASVIR
     Indication: HEPATITIS C
     Dosage: 60 MG, UNK
     Route: 048
     Dates: start: 20160507

REACTIONS (3)
  - Hepatic pain [Unknown]
  - Drug ineffective [Unknown]
  - Back pain [Unknown]

NARRATIVE: CASE EVENT DATE: 20160325
